FAERS Safety Report 17630819 (Version 3)
Quarter: 2020Q3

REPORT INFORMATION
  Report Type: Report from Study
  Country: US (occurrence: US)
  Receive Date: 20200406
  Receipt Date: 20200721
  Transmission Date: 20201102
  Serious: No
  Sender: FDA-Public Use
  Company Number: US-KYOWAKIRIN-2020BKK005056

PATIENT

DRUGS (1)
  1. CRYSVITA [Suspect]
     Active Substance: BUROSUMAB-TWZA
     Indication: PRODUCT USED FOR UNKNOWN INDICATION
     Dosage: 70 MG, EVERY 28 DAYS
     Route: 065

REACTIONS (6)
  - Fatigue [Unknown]
  - Pain [Unknown]
  - Arthralgia [Unknown]
  - Pruritus [Recovered/Resolved]
  - Restless arm syndrome [Unknown]
  - Restless legs syndrome [Not Recovered/Not Resolved]
